FAERS Safety Report 8091741-6 (Version None)
Quarter: 2012Q1

REPORT INFORMATION
  Report Type: 
  Country: None (occurrence: None)
  Receive Date: 20120131
  Receipt Date: 20120118
  Transmission Date: 20120608
  Serious: Yes (Hospitalization)
  Sender: FDA-Public Use
  Company Number: US-EISAI INC-E7389-01805-CLI-US

PATIENT
  Sex: Female
  Weight: 78 kg

DRUGS (9)
  1. NAPROXEN [Concomitant]
     Route: 048
     Dates: start: 20111130
  2. CAPECITABINE [Suspect]
     Indication: BREAST CANCER
     Route: 048
     Dates: start: 20111123, end: 20111201
  3. GLIPIZIDE [Concomitant]
     Route: 048
     Dates: start: 20110804
  4. GLUCOSAMINE SULFATE [Concomitant]
     Route: 048
     Dates: start: 20110804
  5. EPIRUBICIN HYDROCHLORIDE [Suspect]
     Indication: BREAST CANCER
     Route: 041
     Dates: start: 20111026, end: 20111130
  6. CAPECITABINE [Suspect]
     Route: 048
     Dates: start: 20111026, end: 20111108
  7. METFORMIN HCL [Concomitant]
     Route: 048
     Dates: start: 20110804
  8. LISINOPRIL AND HYDROCHLOROTHIAZIDE [Concomitant]
     Indication: HYPERTENSION
     Route: 048
     Dates: start: 20110804
  9. PROMETHAZINE HCL [Concomitant]
     Indication: NAUSEA
     Route: 048
     Dates: start: 20111004

REACTIONS (3)
  - NAUSEA [None]
  - GASTRITIS [None]
  - VOMITING [None]
